FAERS Safety Report 6326202-5 (Version None)
Quarter: 2009Q3

REPORT INFORMATION
  Report Type: 
  Country: None (occurrence: None)
  Receive Date: 20090824
  Receipt Date: 20090813
  Transmission Date: 20100115
  Serious: Yes (Other)
  Sender: FDA-Public Use
  Company Number: HQWYE203503JUN05

PATIENT
  Sex: Female
  Weight: 81.72 kg

DRUGS (3)
  1. PREMARIN [Suspect]
  2. OGEN [Suspect]
  3. PROVERA [Suspect]

REACTIONS (1)
  - CONTRALATERAL BREAST CANCER [None]
